FAERS Safety Report 19862956 (Version 3)
Quarter: 2021Q4

REPORT INFORMATION
  Report Type: Spontaneous
  Country: UA (occurrence: UA)
  Receive Date: 20210921
  Receipt Date: 20211021
  Transmission Date: 20220303
  Serious: Yes (Other)
  Sender: FDA-Public Use
  Company Number: 2021A730450

PATIENT
  Age: 14 Year
  Sex: Male

DRUGS (1)
  1. SYMBICORT [Suspect]
     Active Substance: BUDESONIDE\FORMOTEROL FUMARATE DIHYDRATE
     Indication: Asthma
     Dosage: 160 MCG/4.5 MCG FOR INHALATION 1 DOSE TWO TIMES PER DAY
     Route: 055
     Dates: start: 20210801, end: 20210912

REACTIONS (5)
  - Tongue ulceration [Recovering/Resolving]
  - Mouth ulceration [Recovering/Resolving]
  - Oropharyngeal plaque [Recovering/Resolving]
  - Dysphonia [Recovering/Resolving]
  - Oral fungal infection [Unknown]

NARRATIVE: CASE EVENT DATE: 20210901
